FAERS Safety Report 9455360 (Version 2)
Quarter: 2013Q4

REPORT INFORMATION
  Report Type: Report from Study
  Country: CH (occurrence: CH)
  Receive Date: 20130813
  Receipt Date: 20131122
  Transmission Date: 20140711
  Serious: Yes (Hospitalization)
  Sender: FDA-Public Use
  Company Number: PHHO2013CH010283

PATIENT
  Sex: 0

DRUGS (9)
  1. SANDIMMUN [Suspect]
     Indication: STEM CELL TRANSPLANT
     Dosage: 100 MG, UNK [1-0-1]
     Dates: start: 201307
  2. KRP203 [Suspect]
     Indication: STEM CELL TRANSPLANT
     Dosage: 3 MG, UNK
     Route: 048
     Dates: start: 20130701, end: 20130803
  3. KRP203 [Suspect]
     Dosage: 3 MG, UNK
     Route: 048
     Dates: start: 20130806
  4. CELLCEPT [Suspect]
     Indication: STEM CELL TRANSPLANT
     Dosage: 1250 MG, UNK [1-0-1]
     Dates: start: 201307
  5. NOPIL [Concomitant]
     Dosage: 160 MG, UNK [0-1-0]
     Dates: start: 20101001
  6. DIFLUCAN [Concomitant]
     Dosage: 200 MG, UNK[ 0-2-0]
     Dates: start: 20101001
  7. VALTREX [Concomitant]
     Dosage: 500 MG, UNK [1-0-1]
     Dates: start: 20101001
  8. ATORVASTATIN [Concomitant]
     Dosage: 40 MG, UNK [0-0-1]
     Dates: start: 201307
  9. TRIATEC [Concomitant]
     Dosage: 5 MG, UNK [1-0-0]
     Dates: start: 20101006

REACTIONS (2)
  - Dyspnoea [Recovered/Resolved]
  - Weight increased [Recovered/Resolved]
